FAERS Safety Report 5351783-8 (Version None)
Quarter: 2007Q2

REPORT INFORMATION
  Report Type: 
  Country: None (occurrence: None)
  Receive Date: 20070521
  Receipt Date: 20070228
  Transmission Date: 20071010
  Serious: No
  Sender: FDA-Public Use
  Company Number: WAES 0703USA0096

PATIENT
  Age: 59 Year
  Sex: Male

DRUGS (5)
  1. JANUVIA [Suspect]
     Indication: DIABETES MELLITUS NON-INSULIN-DEPENDENT
     Dosage: 100 MG/DAILY/PO
     Route: 048
     Dates: start: 20070218
  2. ACTOPLUS MET [Concomitant]
  3. LOTENSIN [Concomitant]
  4. HYDROCHLOROTHIAZIDE [Concomitant]
  5. SPIRONOLACTONE [Concomitant]

REACTIONS (2)
  - BLOOD GLUCOSE INCREASED [None]
  - VISUAL DISTURBANCE [None]
